FAERS Safety Report 24465527 (Version 1)
Quarter: 2024Q4

REPORT INFORMATION
  Report Type: Spontaneous
  Country: US (occurrence: US)
  Receive Date: 20241018
  Receipt Date: 20241018
  Transmission Date: 20250115
  Serious: No
  Sender: ROCHE
  Company Number: US-ROCHE-3527172

PATIENT
  Sex: Female

DRUGS (2)
  1. XOLAIR [Suspect]
     Active Substance: OMALIZUMAB
     Indication: Product used for unknown indication
     Route: 065
  2. METHYLPREDNISOLONE [Concomitant]
     Active Substance: METHYLPREDNISOLONE

REACTIONS (11)
  - Upper-airway cough syndrome [Unknown]
  - Lethargy [Unknown]
  - Increased upper airway secretion [Unknown]
  - Cough [Unknown]
  - Myalgia [Unknown]
  - Glaucoma [Unknown]
  - Oedema [Unknown]
  - Swelling [Unknown]
  - Pruritus [Unknown]
  - Eczema [Unknown]
  - Lip swelling [Unknown]
